FAERS Safety Report 5618545-5 (Version None)
Quarter: 2008Q1

REPORT INFORMATION
  Report Type: 
  Country: None (occurrence: None)
  Receive Date: 20080204
  Receipt Date: 20080129
  Transmission Date: 20080703
  Serious: Yes (Death)
  Sender: FDA-Public Use
  Company Number: 163-21880-08011289

PATIENT
  Age: 68 Year
  Sex: Male

DRUGS (3)
  1. REVLIMID [Suspect]
     Indication: MULTIPLE MYELOMA
     Dosage: X21 DAYS/ 28 DAYS, ORAL
     Route: 048
     Dates: start: 20070912, end: 20071001
  2. REVLIMID [Suspect]
     Indication: MULTIPLE MYELOMA
     Dosage: X21 DAYS/ 28 DAYS, ORAL
     Route: 048
     Dates: start: 20071022, end: 20071201
  3. REVLIMID [Suspect]

REACTIONS (1)
  - MULTIPLE MYELOMA [None]
